FAERS Safety Report 13326216 (Version 8)
Quarter: 2018Q2

REPORT INFORMATION
  Report Type: Report from Study
  Country: None (occurrence: US)
  Receive Date: 20170311
  Receipt Date: 20180612
  Transmission Date: 20180711
  Serious: Yes (Other)
  Sender: FDA-Public Use
  Company Number: US-ABBVIE-17K-163-1896340-00

PATIENT
  Age: 58 Year
  Sex: Female
  Weight: 69.46 kg

DRUGS (9)
  1. VITAMIN D [Concomitant]
     Active Substance: CHOLECALCIFEROL
     Indication: PRODUCT USED FOR UNKNOWN INDICATION
  2. HUMIRA [Suspect]
     Active Substance: ADALIMUMAB
     Route: 058
     Dates: start: 201701
  3. NITROFURANTOIN. [Concomitant]
     Active Substance: NITROFURANTOIN
     Indication: PRODUCT USED FOR UNKNOWN INDICATION
  4. HUMIRA [Suspect]
     Active Substance: ADALIMUMAB
     Indication: CROHN^S DISEASE
     Route: 058
     Dates: start: 201612, end: 201701
  5. TRAVATAN [Concomitant]
     Active Substance: TRAVOPROST
     Indication: GLAUCOMA
  6. ZOLPIDEM [Concomitant]
     Active Substance: ZOLPIDEM\ZOLPIDEM TARTRATE
     Indication: INSOMNIA
  7. ESCITALOPRAM [Concomitant]
     Active Substance: ESCITALOPRAM OXALATE
     Indication: DEPRESSION
  8. IBUPROFEN. [Concomitant]
     Active Substance: IBUPROFEN
     Indication: PAIN
  9. OMEPRAZOLE. [Concomitant]
     Active Substance: OMEPRAZOLE
     Indication: DYSPEPSIA

REACTIONS (27)
  - Contusion [Unknown]
  - Blood sodium decreased [Unknown]
  - Dyspepsia [Unknown]
  - Dyspnoea [Unknown]
  - Heart rate increased [Unknown]
  - Increased tendency to bruise [Unknown]
  - Fall [Unknown]
  - Cervix carcinoma [Unknown]
  - Gait disturbance [Not Recovered/Not Resolved]
  - Blood cholesterol increased [Unknown]
  - Papilloma viral infection [Unknown]
  - Seizure [Recovered/Resolved]
  - Hip arthroplasty [Unknown]
  - Head discomfort [Not Recovered/Not Resolved]
  - Vomiting [Recovered/Resolved]
  - Rash erythematous [Unknown]
  - Weight increased [Unknown]
  - Nausea [Recovered/Resolved]
  - Hypersensitivity [Unknown]
  - Intestinal perforation [Unknown]
  - Dizziness [Unknown]
  - Surgical skin tear [Unknown]
  - Blood triglycerides increased [Unknown]
  - Generalised tonic-clonic seizure [Recovered/Resolved]
  - Pulmonary embolism [Unknown]
  - Pain [Unknown]
  - Hypertension [Unknown]

NARRATIVE: CASE EVENT DATE: 2017
